FAERS Safety Report 9027705 (Version 1)
Quarter: 2013Q1

REPORT INFORMATION
  Report Type: Spontaneous
  Country: IT (occurrence: IT)
  Receive Date: 20130124
  Receipt Date: 20130124
  Transmission Date: 20140127
  Serious: Yes (Hospitalization)
  Sender: FDA-Public Use
  Company Number: IT-AMGEN-ITASP2013004895

PATIENT
  Age: 68 Year
  Sex: Male

DRUGS (9)
  1. ENBREL [Suspect]
     Indication: PSORIASIS
     Dosage: 25 MG, WEEKLY
     Route: 058
     Dates: start: 20060201, end: 20120201
  2. ENBREL [Suspect]
     Indication: PSORIATIC ARTHROPATHY
     Dosage: UNK
  3. TEGRETOL [Concomitant]
     Dosage: 200 MG, UNK
     Route: 048
  4. CARDICOR [Concomitant]
     Dosage: UNK
  5. ZYLORIC [Concomitant]
     Dosage: UNK
  6. NEXIUM                             /01479303/ [Concomitant]
     Dosage: UNK
  7. TICLOPIDINE [Concomitant]
     Dosage: UNK
  8. SIMVASTATIN [Concomitant]
     Dosage: UNK
  9. LANSOPRAZOLE [Concomitant]
     Dosage: UNK

REACTIONS (1)
  - Pneumonitis [Recovered/Resolved]
